FAERS Safety Report 8397469-7 (Version None)
Quarter: 2012Q2

REPORT INFORMATION
  Report Type: 
  Country: None (occurrence: None)
  Receive Date: 20120531
  Receipt Date: 20120224
  Transmission Date: 20120825
  Serious: Yes (Hospitalization)
  Sender: FDA-Public Use
  Company Number: US-JNJFOC-20120213128

PATIENT
  Sex: Female
  Weight: 95 kg

DRUGS (3)
  1. METHOTREXATE [Concomitant]
     Route: 065
  2. REMICADE [Suspect]
     Indication: RHEUMATOID ARTHRITIS
     Route: 042
  3. PREDNISONE TAB [Concomitant]
     Route: 065

REACTIONS (1)
  - PULMONARY EMBOLISM [None]
